FAERS Safety Report 23380086 (Version 3)
Quarter: 2024Q1

REPORT INFORMATION
  Report Type: Other
  Country: CZ (occurrence: None)
  Receive Date: 20240109
  Receipt Date: 20240131
  Transmission Date: 20240410
  Serious: Yes (Other)
  Sender: FDA-Public Use
  Company Number: CZ-ROCHE-3486041

PATIENT
  Age: 67 Year
  Sex: Male

DRUGS (12)
  1. ATEZOLIZUMAB [Suspect]
     Active Substance: ATEZOLIZUMAB
     Indication: Lung adenocarcinoma
     Route: 065
  2. ERLOTINIB [Suspect]
     Active Substance: ERLOTINIB
     Indication: Lung adenocarcinoma
     Route: 048
     Dates: start: 202112
  3. ERLOTINIB [Suspect]
     Active Substance: ERLOTINIB
     Route: 048
  4. OSIMERTINIB [Concomitant]
     Active Substance: OSIMERTINIB
  5. BECLOMETHASONE DIPROPIONATE\FORMOTEROL FUMARATE\GLYCOPYRROLATE [Concomitant]
     Active Substance: BECLOMETHASONE DIPROPIONATE\FORMOTEROL FUMARATE\GLYCOPYRROLATE
     Dosage: 88/5/9 MG 2 X 2 INHALATIONS
  6. ERDOSTEINE [Concomitant]
     Active Substance: ERDOSTEINE
     Dosage: 300 MG 2 X 1 PO
  7. EUPHYLLIN (UNK INGREDIENTS) [Concomitant]
     Dosage: 200 MG 2 X 1 PO
  8. BISOPROLOL [Concomitant]
     Active Substance: BISOPROLOL\BISOPROLOL FUMARATE
     Dosage: 5 MG TAB 1 X 1 PO
  9. CITALOPRAM [Concomitant]
     Active Substance: CITALOPRAM HYDROBROMIDE
     Dosage: 10 MG 1 X 1 PO
  10. CALCIUM CARBONATE [Concomitant]
     Active Substance: CALCIUM CARBONATE
     Dosage: D3 1 X 1 PO
  11. ZALDIAR [Concomitant]
     Active Substance: ACETAMINOPHEN\TRAMADOL HYDROCHLORIDE
     Dosage: 37/325 MG 2 X 1 PO
  12. PREGABALIN [Concomitant]
     Active Substance: PREGABALIN
     Dosage: 150 MG 2 X 1 PO

REACTIONS (4)
  - Rash [Unknown]
  - Disease progression [Unknown]
  - Metastasis [Unknown]
  - EGFR gene mutation [Unknown]
